FAERS Safety Report 5782960-X (Version None)
Quarter: 2008Q2

REPORT INFORMATION
  Report Type: 
  Country: None (occurrence: None)
  Receive Date: 20080624
  Receipt Date: 20080617
  Transmission Date: 20081010
  Serious: Yes (Hospitalization)
  Sender: FDA-Public Use
  Company Number: PHHO2005US05462

PATIENT
  Sex: Female
  Weight: 68.7 kg

DRUGS (7)
  1. ZELMAC HTF+TAB [Suspect]
     Indication: DYSPEPSIA
     Dosage: UNK, BID
     Route: 048
     Dates: start: 20041220, end: 20050324
  2. ANTIBIOTICS [Concomitant]
  3. AUGMENTIN '125' [Concomitant]
  4. CONCERTA [Concomitant]
  5. SINGULAIR [Concomitant]
  6. ALBUTEROL [Concomitant]
  7. CITRUCEL [Concomitant]

REACTIONS (4)
  - ABDOMINAL PAIN [None]
  - APPENDICITIS [None]
  - NAUSEA [None]
  - VOMITING [None]
